FAERS Safety Report 11302449 (Version 1)
Quarter: 2015Q3

REPORT INFORMATION
  Report Type: Spontaneous
  Country: US (occurrence: None)
  Receive Date: 20150723
  Receipt Date: 20150723
  Transmission Date: 20151125
  Serious: Yes (Hospitalization)
  Sender: FDA-Public Use
  Company Number: None

PATIENT
  Age: 37 Year
  Sex: Male
  Weight: 90.1 kg

DRUGS (2)
  1. ENOXAPARIN [Suspect]
     Active Substance: ENOXAPARIN
     Indication: DEEP VEIN THROMBOSIS
     Route: 058
     Dates: start: 20150621, end: 20150626
  2. FONDAPARINUX [Suspect]
     Active Substance: FONDAPARINUX
     Route: 058
     Dates: start: 20150626, end: 20150629

REACTIONS (2)
  - Transaminases increased [None]
  - Hepatotoxicity [None]

NARRATIVE: CASE EVENT DATE: 20150629
